APPROVED DRUG PRODUCT: GENTAMICIN SULFATE
Active Ingredient: GENTAMICIN SULFATE
Strength: EQ 0.3% BASE
Dosage Form/Route: OINTMENT;OPHTHALMIC
Application: A064093 | Product #001
Applicant: SCIEGEN PHARMACEUTICALS INC
Approved: Aug 31, 1995 | RLD: No | RS: No | Type: DISCN